FAERS Safety Report 4932193-1 (Version None)
Quarter: 2006Q1

REPORT INFORMATION
  Report Type: 
  Country: None (occurrence: None)
  Receive Date: 20060228
  Receipt Date: 20060214
  Transmission Date: 20060701
  Serious: Yes (Death, Hospitalization, Other)
  Sender: FDA-Public Use
  Company Number: A-US2005-10703

PATIENT
  Age: 20 Year
  Sex: Female
  Weight: 55 kg

DRUGS (16)
  1. TRACLEER [Suspect]
     Indication: PULMONARY HYPERTENSION
     Dosage: SEE IMAGE
     Route: 048
     Dates: start: 20050601, end: 20050701
  2. TRACLEER [Suspect]
     Indication: PULMONARY HYPERTENSION
     Dosage: SEE IMAGE
     Route: 048
     Dates: start: 20050702, end: 20050912
  3. TYLENOL (CAPLET) [Concomitant]
  4. SILDENAFIL CITRATE [Concomitant]
  5. PREDNISONE TAB [Concomitant]
  6. NYSTATIN [Concomitant]
  7. LASIX [Concomitant]
  8. SPIRONOLACTONE [Concomitant]
  9. NEPHROCAPS (FOLIC ACID, VITAMINS NOS) [Concomitant]
  10. OXYGEN (OXYGEN) [Concomitant]
  11. INSULIN (INSULIN) [Concomitant]
  12. COUMADIN [Concomitant]
  13. BENADRYL [Concomitant]
  14. METHOTREXATE [Concomitant]
  15. STEROIDS [Concomitant]
  16. IMMUNOGLOBULINS (IMMUNOGLOBULINS) [Concomitant]

REACTIONS (33)
  - ABDOMINAL DISTENSION [None]
  - ACTIVATED PARTIAL THROMBOPLASTIN TIME PROLONGED [None]
  - ARTHRALGIA [None]
  - ASCITES [None]
  - BLOOD ALBUMIN DECREASED [None]
  - CYTOMEGALOVIRUS ANTIBODY POSITIVE [None]
  - DERMATITIS ALLERGIC [None]
  - DIABETES MELLITUS [None]
  - DIARRHOEA HAEMORRHAGIC [None]
  - DIZZINESS [None]
  - DYSPNOEA [None]
  - EPSTEIN-BARR VIRUS ANTIBODY POSITIVE [None]
  - FATIGUE [None]
  - GALLBLADDER DISORDER [None]
  - HEPATIC FAILURE [None]
  - HEPATIC FIBROSIS [None]
  - HEPATITIS [None]
  - HEPATOSPLENOMEGALY [None]
  - HEPATOTOXICITY [None]
  - HILAR LYMPHADENOPATHY [None]
  - HYPONATRAEMIA [None]
  - INTERNATIONAL NORMALISED RATIO INCREASED [None]
  - LETHARGY [None]
  - ORAL CANDIDIASIS [None]
  - PANCYTOPENIA [None]
  - PERICARDIAL EFFUSION [None]
  - PRODUCTIVE COUGH [None]
  - PROTHROMBIN TIME PROLONGED [None]
  - RASH ERYTHEMATOUS [None]
  - RETCHING [None]
  - SOMNOLENCE [None]
  - SPLEEN DISORDER [None]
  - VEIN DISORDER [None]
